FAERS Safety Report 9105973 (Version 3)
Quarter: 2013Q2

REPORT INFORMATION
  Report Type: Spontaneous
  Country: US (occurrence: US)
  Receive Date: 20130220
  Receipt Date: 20130530
  Transmission Date: 20140414
  Serious: Yes (Hospitalization, Other)
  Sender: FDA-Public Use
  Company Number: US-ELI_LILLY_AND_COMPANY-US201302004579

PATIENT
  Age: 63 Year
  Sex: Female

DRUGS (7)
  1. FORTEO [Suspect]
     Indication: OSTEOPOROSIS
     Dosage: UNK UNK, QD
     Dates: start: 20111201
  2. FORTEO [Suspect]
     Dosage: UNK, QD
  3. LAMICTAL [Concomitant]
  4. ARMOUR THYROID [Concomitant]
  5. CARVEDILOL [Concomitant]
  6. SIMVASTATIN [Concomitant]
  7. PLAVIX [Concomitant]

REACTIONS (9)
  - Hip fracture [Unknown]
  - Fall [Unknown]
  - Patella fracture [Recovered/Resolved]
  - Fall [Unknown]
  - Clavicle fracture [Unknown]
  - Fall [Unknown]
  - Headache [Unknown]
  - Weight decreased [Unknown]
  - Device expulsion [Unknown]
